FAERS Safety Report 13783986 (Version 1)
Quarter: 2017Q3

REPORT INFORMATION
  Report Type: Spontaneous
  Country: ES (occurrence: ES)
  Receive Date: 20170724
  Receipt Date: 20170724
  Transmission Date: 20171127
  Serious: Yes (Death, Hospitalization)
  Sender: FDA-Public Use
  Company Number: PHHY2017ES104245

PATIENT
  Age: 45 Year
  Sex: Male

DRUGS (1)
  1. METHOTREXATE. [Suspect]
     Active Substance: METHOTREXATE
     Indication: PRIMARY EFFUSION LYMPHOMA
     Route: 065

REACTIONS (3)
  - Sepsis [Fatal]
  - Cytopenia [Fatal]
  - Drug ineffective [Fatal]
